FAERS Safety Report 19524562 (Version 1)
Quarter: 2021Q3

REPORT INFORMATION
  Report Type: Spontaneous
  Country: US (occurrence: US)
  Receive Date: 20210712
  Receipt Date: 20210712
  Transmission Date: 20211014
  Serious: No
  Sender: FDA-Public Use
  Company Number: None

PATIENT
  Sex: Male
  Weight: 72.72 kg

DRUGS (6)
  1. ERLEADA [Suspect]
     Active Substance: APALUTAMIDE
     Route: 048
  2. ATORVASTATIN CALCIUM. [Concomitant]
     Active Substance: ATORVASTATIN CALCIUM
  3. ALLOPRUINOL [Concomitant]
  4. GABAPENTIN. [Concomitant]
     Active Substance: GABAPENTIN
  5. AMLODIPINE [Concomitant]
     Active Substance: AMLODIPINE BESYLATE
  6. LISINOPRIL. [Concomitant]
     Active Substance: LISINOPRIL

REACTIONS (2)
  - Dizziness [None]
  - Fall [None]
